FAERS Safety Report 7685550 (Version 4)
Quarter: 2012Q4

REPORT INFORMATION
  Report Type: Report from Study
  Country: FR (occurrence: FR)
  Receive Date: 20101129
  Receipt Date: 20121228
  Transmission Date: 20130627
  Serious: Yes (Hospitalization, Other)
  Sender: FDA-Public Use
  Company Number: FR-ABBOTT-10P-056-0686684-01

PATIENT
  Age: 45 Year
  Sex: Female

DRUGS (4)
  1. HUMIRA [Suspect]
     Indication: CROHN^S DISEASE
     Route: 058
     Dates: start: 20090619, end: 20100906
  2. HUMIRA [Suspect]
     Route: 058
     Dates: start: 20101130
  3. PREDNISONE [Concomitant]
     Indication: CROHN^S DISEASE
     Dates: start: 200306
  4. PREDNISONE [Concomitant]
     Dates: start: 20090520, end: 20091104

REACTIONS (1)
  - Ileal stenosis [Recovered/Resolved]
